FAERS Safety Report 5604226-0 (Version None)
Quarter: 2008Q1

REPORT INFORMATION
  Report Type: 
  Country: None (occurrence: None)
  Receive Date: 20080128
  Receipt Date: 20080121
  Transmission Date: 20080703
  Serious: Yes (Hospitalization)
  Sender: FDA-Public Use
  Company Number: DK-BAYER-200811561GPV

PATIENT
  Age: 33 Year
  Sex: Male

DRUGS (12)
  1. ASPIRIN [Suspect]
     Indication: BACK PAIN
     Dosage: AS USED: 1 G
     Route: 065
  2. PHENAZONE [Suspect]
  3. NARCODORM [Concomitant]
     Indication: INTERVERTEBRAL DISC OPERATION
     Route: 065
  4. RELAXAN [Concomitant]
     Indication: INTERVERTEBRAL DISC OPERATION
     Route: 065
  5. HALDID [Concomitant]
     Indication: INTERVERTEBRAL DISC PROTRUSION
     Route: 065
  6. NITROUS OXIDE [Concomitant]
     Indication: INTERVERTEBRAL DISC OPERATION
     Route: 065
  7. ALLYPROPYMALUM [Concomitant]
     Indication: INTERVERTEBRAL DISC OPERATION
     Route: 065
  8. ENHEXYMALUM [Concomitant]
     Indication: INTERVERTEBRAL DISC OPERATION
     Route: 065
  9. NITRAZEPAM [Concomitant]
     Indication: INTERVERTEBRAL DISC OPERATION
     Route: 065
  10. SODIUM BICARBONATE [Concomitant]
     Indication: HEPATITIS
     Dosage: TOTAL DAILY DOSE: 3 DF
     Route: 048
  11. CODEINE PHOSPHATE [Concomitant]
  12. SODIUM PHENEMAL [Concomitant]

REACTIONS (5)
  - CHROMATURIA [None]
  - GLUCOSE-6-PHOSPHATE DEHYDROGENASE DEFICIENCY [None]
  - JAUNDICE [None]
  - MALAISE [None]
  - NAUSEA [None]
